FAERS Safety Report 16641614 (Version 1)
Quarter: 2019Q3

REPORT INFORMATION
  Report Type: Spontaneous
  Country: ES (occurrence: ES)
  Receive Date: 20190729
  Receipt Date: 20190729
  Transmission Date: 20191004
  Serious: Yes (Hospitalization)
  Sender: FDA-Public Use
  Company Number: ES-ACCORD-149260

PATIENT
  Age: 86 Year
  Sex: Male

DRUGS (3)
  1. AMLODIPINE [Suspect]
     Active Substance: AMLODIPINE BESYLATE
     Indication: PRODUCT USED FOR UNKNOWN INDICATION
     Dosage: STRENGTH:5 MG TABLETS 30 TABLETS, 1 AT BREAKFAST
     Route: 048
     Dates: start: 20121107, end: 20190708
  2. CIPROFLOXACIN. [Suspect]
     Active Substance: CIPROFLOXACIN
     Indication: URINARY TRACT INFECTION
     Dosage: STRENGTH: 500 MG, 14 TABLETS
     Route: 048
     Dates: start: 20190627, end: 20190703
  3. DOXAZOSIN [Suspect]
     Active Substance: DOXAZOSIN MESYLATE
     Indication: HYPERTENSION
     Dosage: STRENGTH: 4 MG 28 TABLETS MODIFIED RELEASE
     Route: 048
     Dates: start: 20121107, end: 20190710

REACTIONS (1)
  - Acute kidney injury [Recovered/Resolved]

NARRATIVE: CASE EVENT DATE: 20190705
